FAERS Safety Report 25212122 (Version 1)
Quarter: 2025Q2

REPORT INFORMATION
  Report Type: Spontaneous
  Country: EG (occurrence: EG)
  Receive Date: 20250418
  Receipt Date: 20250418
  Transmission Date: 20250716
  Serious: Yes (Hospitalization, Other)
  Sender: HIKMA
  Company Number: EG-HIKMA PHARMACEUTICALS USA INC.-EG-H14001-25-03316

PATIENT
  Age: 54 Year
  Sex: Female
  Weight: 90 kg

DRUGS (3)
  1. CARBOPLATIN [Suspect]
     Active Substance: CARBOPLATIN
     Dosage: 150 MILLIGRAM, WEEKLY
     Route: 042
     Dates: start: 20250102
  2. CARBOPLATIN [Suspect]
     Active Substance: CARBOPLATIN
     Indication: Breast cancer
     Dosage: 200 MILLIGRAM, WEEKLY
     Route: 042
     Dates: start: 20241218
  3. PACLITAXEL [Suspect]
     Active Substance: PACLITAXEL
     Indication: Breast cancer
     Dosage: 120 MILLIGRAM, WEEKLY
     Route: 042
     Dates: start: 20241218

REACTIONS (6)
  - Anaemia [Recovered/Resolved]
  - Swelling face [Recovered/Resolved]
  - Eye swelling [Unknown]
  - Pain [Recovered/Resolved]
  - Skin burning sensation [Recovered/Resolved]
  - Lip swelling [Unknown]

NARRATIVE: CASE EVENT DATE: 20250102
